FAERS Safety Report 7485844-4 (Version None)
Quarter: 2011Q2

REPORT INFORMATION
  Report Type: 
  Country: None (occurrence: None)
  Receive Date: 20110517
  Receipt Date: 20110110
  Transmission Date: 20111010
  Serious: No
  Sender: FDA-Public Use
  Company Number: US-BAYER-2011-003469

PATIENT
  Sex: Female
  Weight: 95 kg

DRUGS (9)
  1. CORTISONE [CORTISONE] [Concomitant]
     Dosage: UNK
     Dates: start: 20101228
  2. NORCO [Concomitant]
  3. VITAMIN B12 NOS [Concomitant]
  4. CALTRATE [CALCIUM CARBONATE] [Concomitant]
  5. ALEVE (CAPLET) [Suspect]
     Dosage: 440 MG, QID
     Route: 048
  6. PROBIOTICS [Concomitant]
  7. PRESERVISION EYE VITAMIN AND MINERAL SUPPL. [Concomitant]
  8. ALEVE (CAPLET) [Suspect]
     Indication: ARTHRALGIA
     Dosage: DAILY DOSE 660 MG
     Route: 048
     Dates: start: 20101101
  9. VITAMIN B6 [Concomitant]

REACTIONS (2)
  - ARTHRALGIA [None]
  - NO ADVERSE EVENT [None]
